FAERS Safety Report 20593658 (Version 1)
Quarter: 2022Q1

REPORT INFORMATION
  Report Type: Report from Study
  Country: DE (occurrence: DE)
  Receive Date: 20220315
  Receipt Date: 20220315
  Transmission Date: 20220423
  Serious: Yes (Death, Other)
  Sender: FDA-Public Use
  Company Number: None

PATIENT
  Age: 48 Year
  Sex: Male

DRUGS (39)
  1. ETOPOSIDE [Suspect]
     Active Substance: ETOPOSIDE
     Indication: Product used for unknown indication
     Dosage: 247.26 MG, BID
     Route: 042
     Dates: start: 20200113, end: 20201016
  2. CYTARABINE [Suspect]
     Active Substance: CYTARABINE
     Indication: Product used for unknown indication
     Dosage: 370.89 MG, 1X
     Route: 042
     Dates: start: 20201013, end: 20201013
  3. MEPERIDINE HYDROCHLORIDE [Suspect]
     Active Substance: MEPERIDINE HYDROCHLORIDE
     Indication: Adverse event
     Dosage: 50 MG, 1X
     Route: 042
     Dates: start: 20210119, end: 20210119
  4. CARMUSTINE [Suspect]
     Active Substance: CARMUSTINE
     Indication: Product used for unknown indication
     Dosage: 370.89 MG, QD
     Route: 042
     Dates: start: 20201013, end: 20201013
  5. PLERIXAFOR [Suspect]
     Active Substance: PLERIXAFOR
     Indication: Product used for unknown indication
     Dosage: UNK
     Route: 065
  6. MELPHALAN [Suspect]
     Active Substance: MELPHALAN
     Indication: Product used for unknown indication
     Dosage: 230.78 MG, 1X
     Route: 042
     Dates: start: 20200113, end: 20200113
  7. ENOXAPARIN SODIUM [Suspect]
     Active Substance: ENOXAPARIN SODIUM
     Indication: Prophylaxis
     Dosage: 60 MG, BID
     Route: 058
     Dates: start: 20200807
  8. ENTECAVIR [Concomitant]
     Active Substance: ENTECAVIR
     Indication: Premedication
     Dosage: 0.5 MG, QD
     Route: 048
     Dates: end: 20210129
  9. COTRIMOXAZOLE [Concomitant]
     Active Substance: SULFAMETHOXAZOLE\TRIMETHOPRIM
     Indication: Prophylaxis
     Dosage: 960 MG, Q3W
     Route: 048
  10. PIPERACILLIN [Concomitant]
     Active Substance: PIPERACILLIN
     Indication: Adverse event
     Dosage: UNK
     Route: 042
     Dates: start: 20210113, end: 20210115
  11. DEXAMETHASONE [Concomitant]
     Active Substance: DEXAMETHASONE
     Indication: Adverse event
     Dosage: 40 MG
     Route: 048
     Dates: start: 20210122, end: 20210126
  12. INNOHEP [Concomitant]
     Active Substance: TINZAPARIN SODIUM
     Indication: Prophylaxis
     Dosage: 12000IU
     Route: 058
  13. TRANEXAMIC ACID [Concomitant]
     Active Substance: TRANEXAMIC ACID
     Indication: Adverse event
     Dosage: 1 G, TID
     Route: 042
     Dates: start: 20210119
  14. PANTOPRAZOLE [Concomitant]
     Active Substance: PANTOPRAZOLE
     Indication: Prophylaxis
     Dosage: 40MG
     Route: 048
     Dates: end: 20210129
  15. FIBRINOGEN HUMAN [Concomitant]
     Active Substance: FIBRINOGEN HUMAN
     Indication: Adverse event
     Route: 042
  16. TAZOBACTAM [Concomitant]
     Active Substance: TAZOBACTAM
     Dosage: 0.5 G
     Route: 042
     Dates: start: 20201022, end: 20201026
  17. MSI [Concomitant]
     Active Substance: MORPHINE SULFATE
     Indication: Adverse event
     Dosage: 2.5 MG INFREQUENT
     Route: 058
     Dates: start: 20210118
  18. ACETAMINOPHEN [Concomitant]
     Active Substance: ACETAMINOPHEN
     Indication: Adverse event
     Dosage: 1 G
     Route: 048
     Dates: start: 20210118
  19. FOLIC ACID [Concomitant]
     Active Substance: FOLIC ACID
     Indication: Prophylaxis
     Dosage: 04MG
     Route: 048
  20. MCP [Concomitant]
     Active Substance: METOCLOPRAMIDE HYDROCHLORIDE
     Dosage: UNK
     Route: 048
  21. DIMENHYDRINATE [Concomitant]
     Active Substance: DIMENHYDRINATE
     Dosage: 4 MG, 1X
     Route: 042
     Dates: start: 20210119, end: 20210119
  22. CALCIUM [Concomitant]
     Active Substance: CALCIUM
     Indication: Adverse event
     Route: 042
  23. OXYGEN [Concomitant]
     Active Substance: OXYGEN
     Indication: Adverse event
     Dosage: 2000 ML INFREQUENT
     Route: 055
     Dates: start: 20210118
  24. PLATELETS [Concomitant]
     Active Substance: HUMAN PLATELET, ALLOGENIC
     Indication: Adverse event
     Dosage: UNK UNK, 1X
     Route: 042
     Dates: start: 20210119, end: 20210119
  25. VANCOMYCIN [Concomitant]
     Active Substance: VANCOMYCIN
     Indication: Adverse event
     Dosage: UNK
     Route: 042
     Dates: start: 20210122
  26. ATENATIV [Concomitant]
     Active Substance: ANTITHROMBIN III HUMAN
     Indication: Adverse event
     Dosage: 1.5 THOUSAND IU
     Route: 042
     Dates: start: 20200907, end: 20200907
  27. MEROPENEM [Concomitant]
     Active Substance: MEROPENEM
     Indication: Adverse event
     Dosage: UNK
     Route: 042
     Dates: start: 20201026, end: 20201029
  28. VALACYCLOVIR HYDROCHLORIDE [Concomitant]
     Active Substance: VALACYCLOVIR HYDROCHLORIDE
     Indication: Prophylaxis
     Dosage: 500 MG, BID
     Route: 048
     Dates: end: 20210129
  29. KONAKION [Concomitant]
     Active Substance: PHYTONADIONE
     Indication: Adverse event
     Dosage: UNK
     Route: 042
     Dates: start: 20210118, end: 20210121
  30. HUMAN PLASMA [Concomitant]
     Active Substance: HUMAN PLASMA
     Route: 042
  31. AMPHOTERICIN B [Concomitant]
     Active Substance: AMPHOTERICIN B
     Indication: Prophylaxis
     Dosage: 500 G, QID
     Route: 048
  32. LINEZOLID [Concomitant]
     Active Substance: LINEZOLID
     Indication: Adverse event
     Dosage: UNK
     Route: 042
     Dates: start: 20210128, end: 20210129
  33. SULFAMETHOXAZOLE\TRIMETHOPRIM [Concomitant]
     Active Substance: SULFAMETHOXAZOLE\TRIMETHOPRIM
     Indication: Prophylaxis
     Dosage: 960 MG, Q3W
     Route: 048
     Dates: end: 20210129
  34. VALACYCLOVIR HYDROCHLORIDE [Concomitant]
     Active Substance: VALACYCLOVIR HYDROCHLORIDE
     Indication: Prophylaxis
     Dosage: 500 MG, BID
     Route: 048
  35. NOREPINEPHRINE\NOREPINEPHRINE BITARTRATE [Concomitant]
     Active Substance: NOREPINEPHRINE\NOREPINEPHRINE BITARTRATE
     Indication: Adverse event
     Dosage: UNK, QD
     Route: 042
     Dates: start: 20210122, end: 20210129
  36. PREDNISOLONE [Concomitant]
     Active Substance: PREDNISOLONE
     Indication: Adverse event
     Dosage: 100 MG
     Route: 048
  37. FLUCONAZOLE [Concomitant]
     Active Substance: FLUCONAZOLE
  38. ETOPOSIDE [Concomitant]
     Active Substance: ETOPOSIDE
     Indication: Adverse event
     Dosage: UNK, TOTAL
     Route: 042
     Dates: start: 20210122
  39. MEPERIDINE HYDROCHLORIDE [Concomitant]
     Active Substance: MEPERIDINE HYDROCHLORIDE
     Dosage: UNK
     Route: 042
     Dates: start: 20210118, end: 20210118

REACTIONS (9)
  - Escherichia infection [Not Recovered/Not Resolved]
  - Febrile neutropenia [Recovered/Resolved]
  - Leukopenia [Not Recovered/Not Resolved]
  - Body temperature increased [Unknown]
  - Diarrhoea [Recovered/Resolved]
  - Haemophagocytic lymphohistiocytosis [Fatal]
  - Frequent bowel movements [Unknown]
  - Pyrexia [Not Recovered/Not Resolved]
  - Hypotension [Unknown]

NARRATIVE: CASE EVENT DATE: 20201022
